FAERS Safety Report 4765592-1 (Version None)
Quarter: 2005Q3

REPORT INFORMATION
  Report Type: 
  Country: None (occurrence: None)
  Receive Date: 20050912
  Receipt Date: 20050830
  Transmission Date: 20060218
  Serious: Yes (Other)
  Sender: FDA-Public Use
  Company Number: FR-KINGPHARMUSA00001-K200501151

PATIENT
  Age: 87 Year
  Sex: Female

DRUGS (2)
  1. SEPTRA [Suspect]
     Indication: URINARY TRACT INFECTION
     Dosage: 80/400 MG, QD
  2. GLICLAZIDE [Suspect]
     Indication: DIABETES MELLITUS NON-INSULIN-DEPENDENT
     Dosage: 60 MG, QD

REACTIONS (3)
  - DRUG INTERACTION [None]
  - HYPOGLYCAEMIC COMA [None]
  - URINARY TRACT INFECTION [None]
